FAERS Safety Report 10605764 (Version 2)
Quarter: 2014Q4

REPORT INFORMATION
  Report Type: Report from Study
  Country: CA (occurrence: CA)
  Receive Date: 20141125
  Receipt Date: 20141125
  Transmission Date: 20150529
  Serious: Yes (Hospitalization)
  Sender: FDA-Public Use
  Company Number: CA-BRISTOL-MYERS SQUIBB COMPANY-21521042

PATIENT
  Age: 73 Year
  Sex: Male

DRUGS (11)
  1. ALTACE [Concomitant]
     Active Substance: RAMIPRIL
  2. CARBOCAL [Concomitant]
     Active Substance: CALCIUM CARBONATE
  3. ORENCIA [Suspect]
     Active Substance: ABATACEPT
     Indication: RHEUMATOID ARTHRITIS
     Dosage: EXP:AUG2016
     Route: 042
     Dates: start: 20080407
  4. PREDNISONE. [Suspect]
     Active Substance: PREDNISONE
  5. TEMAZEPAM. [Concomitant]
     Active Substance: TEMAZEPAM
  6. FOLIC ACID. [Concomitant]
     Active Substance: FOLIC ACID
  7. ALENDRONATE [Concomitant]
     Active Substance: ALENDRONATE SODIUM
  8. OMEPRAZOLE. [Concomitant]
     Active Substance: OMEPRAZOLE
  9. PROPANOLOL HYDROCHLORIDE [Concomitant]
     Active Substance: PROPRANOLOL HYDROCHLORIDE
  10. METHOTREXATE [Suspect]
     Active Substance: METHOTREXATE
  11. SIMVASTATIN. [Concomitant]
     Active Substance: SIMVASTATIN

REACTIONS (3)
  - Pneumonia [Recovered/Resolved]
  - Fall [Recovered/Resolved]
  - Cellulitis [Recovered/Resolved]

NARRATIVE: CASE EVENT DATE: 20141017
